FAERS Safety Report 19874036 (Version 2)
Quarter: 2021Q4

REPORT INFORMATION
  Report Type: Spontaneous
  Country: US (occurrence: US)
  Receive Date: 20210922
  Receipt Date: 20211222
  Transmission Date: 20220304
  Serious: Yes (Other)
  Sender: FDA-Public Use
  Company Number: US-JNJFOC-20210924249

PATIENT
  Age: 6 Decade
  Sex: Female

DRUGS (7)
  1. ELMIRON [Suspect]
     Active Substance: PENTOSAN POLYSULFATE SODIUM
     Indication: Cystitis interstitial
     Route: 048
     Dates: start: 2005, end: 2015
  2. ELMIRON [Suspect]
     Active Substance: PENTOSAN POLYSULFATE SODIUM
     Route: 048
     Dates: start: 2019, end: 2019
  3. DICYCLOMINE [Concomitant]
     Active Substance: DICYCLOMINE HYDROCHLORIDE
     Indication: Irritable bowel syndrome
     Route: 065
     Dates: start: 20190102, end: 20191029
  4. METHYLPHENIDATE [Concomitant]
     Active Substance: METHYLPHENIDATE
     Indication: Narcolepsy
     Route: 065
     Dates: start: 20151011, end: 20200122
  5. OXYBUTYNIN [Concomitant]
     Active Substance: OXYBUTYNIN
     Indication: Cystitis interstitial
     Route: 065
     Dates: start: 20190102, end: 20191029
  6. PANTOPRAZOLE [Concomitant]
     Active Substance: PANTOPRAZOLE
     Indication: Gastrooesophageal reflux disease
     Route: 065
     Dates: start: 20190102, end: 20191029
  7. RANITIDINE [Concomitant]
     Active Substance: RANITIDINE
     Indication: Gastrooesophageal reflux disease
     Route: 065
     Dates: start: 20190102, end: 20190805

REACTIONS (4)
  - Macular degeneration [Unknown]
  - Cataract nuclear [Unknown]
  - Retinal pigmentation [Unknown]
  - Migraine [Unknown]

NARRATIVE: CASE EVENT DATE: 20200101
